FAERS Safety Report 13793233 (Version 1)
Quarter: 2017Q3

REPORT INFORMATION
  Report Type: Spontaneous
  Country: US (occurrence: US)
  Receive Date: 20170726
  Receipt Date: 20170726
  Transmission Date: 20171127
  Serious: Yes (Other)
  Sender: FDA-Public Use
  Company Number: None

PATIENT
  Sex: Male
  Weight: 74.25 kg

DRUGS (4)
  1. CHILDREN^S MULTIVITAMIN [Concomitant]
  2. OMEGA 3 [Concomitant]
     Active Substance: OMEGA-3 FATTY ACIDS
  3. POLYETHYLENE GLYCOL 3350 USP POWDER FOR ORAL SOLUTION [Suspect]
     Active Substance: POLYETHYLENE GLYCOL 3350
     Indication: CONSTIPATION
     Dosage: QUANTITY:1 TABLESPOON(S);?
     Route: 048
     Dates: start: 20170725, end: 20170726
  4. PROAIR HFA [Concomitant]
     Active Substance: ALBUTEROL SULFATE

REACTIONS (5)
  - Paranoia [None]
  - Muscle twitching [None]
  - Panic attack [None]
  - Crying [None]
  - Anxiety [None]

NARRATIVE: CASE EVENT DATE: 20170725
